FAERS Safety Report 8554509-X (Version None)
Quarter: 2012Q3

REPORT INFORMATION
  Report Type: 
  Country: None (occurrence: None)
  Receive Date: 20120726
  Receipt Date: 20120726
  Transmission Date: 20120928
  Serious: Yes (Other)
  Sender: FDA-Public Use
  Company Number: None

PATIENT
  Age: 38 Year
  Sex: Female
  Weight: 63.5036 kg

DRUGS (1)
  1. EFFEXOR [Suspect]
     Indication: DEPRESSION
     Dosage: 75MG DAILY PO
     Route: 048
     Dates: start: 20100101, end: 20120724

REACTIONS (9)
  - NAUSEA [None]
  - ACTIVITIES OF DAILY LIVING IMPAIRED [None]
  - AMNESIA [None]
  - IRRITABILITY [None]
  - DIZZINESS [None]
  - SEDATION [None]
  - PARAESTHESIA [None]
  - DRUG DEPENDENCE [None]
  - HYPERHIDROSIS [None]
